FAERS Safety Report 14211682 (Version 1)
Quarter: 2017Q4

REPORT INFORMATION
  Report Type: Spontaneous
  Country: JP (occurrence: JP)
  Receive Date: 20171121
  Receipt Date: 20171121
  Transmission Date: 20180321
  Serious: Yes (Other)
  Sender: FDA-Public Use
  Company Number: JP-CORDEN PHARMA LATINA S.P.A.-JP-2017COR000230

PATIENT
  Age: 72 Year
  Sex: Male

DRUGS (2)
  1. PACLITAXEL. [Suspect]
     Active Substance: PACLITAXEL
     Indication: LUNG ADENOCARCINOMA
     Dosage: SOLVENT-BASED PACLITAXEL 180-200 MG/M2 ON DAY 1 OR A DOSE OF 70-80 MG/M2 ON DAYS 1, 8 AND 15
     Route: 065
  2. CARBOPLATIN. [Suspect]
     Active Substance: CARBOPLATIN
     Indication: LUNG ADENOCARCINOMA
     Dosage: CO-ADMINISTERED CARBOPLATIN WITH AN AREA UNDER THE CURVE OF 4-6 ON DAY 1
     Route: 065

REACTIONS (1)
  - Interstitial lung disease [Recovering/Resolving]
